FAERS Safety Report 8504555 (Version 2)
Quarter: 2012Q4

REPORT INFORMATION
  Report Type: 
  Country: US (occurrence: US)
  Receive Date: 20120411
  Receipt Date: 20121101
  Transmission Date: 20130627
  Serious: Yes (Other)
  Sender: FDA-Public Use
  Company Number: US-ASTRAZENECA-2012SE21976

PATIENT
  Age: 60 Year
  Sex: Male

DRUGS (3)
  1. CRESTOR [Suspect]
     Route: 048
  2. TOPROL XL [Suspect]
     Route: 048
  3. AMFETAMINE [Concomitant]

REACTIONS (6)
  - Arterial occlusive disease [Unknown]
  - Fear of death [Unknown]
  - Limb discomfort [Unknown]
  - Hearing impaired [Unknown]
  - Arthritis [Unknown]
  - Adverse event [Unknown]
